FAERS Safety Report 11968843 (Version 1)
Quarter: 2016Q1

REPORT INFORMATION
  Report Type: Spontaneous
  Country: PH (occurrence: PH)
  Receive Date: 20160128
  Receipt Date: 20160128
  Transmission Date: 20160526
  Serious: Yes (Death)
  Sender: FDA-Public Use
  Company Number: PH-009507513-1601PHL009517

PATIENT
  Age: 71 Year
  Sex: Male

DRUGS (3)
  1. JANUMET [Suspect]
     Active Substance: METFORMIN HYDROCHLORIDE\SITAGLIPTIN PHOSPHATE
     Indication: DIABETES MELLITUS
     Dosage: 1 TABLET, ONCE A DAY
     Route: 048
     Dates: end: 20150921
  2. LANOXIN [Concomitant]
     Active Substance: DIGOXIN
     Indication: CARDIAC DISORDER
     Dosage: UNK
  3. CAPTOPRIL. [Concomitant]
     Active Substance: CAPTOPRIL
     Indication: HYPERTENSION
     Dosage: UNK

REACTIONS (2)
  - Inappropriate schedule of drug administration [Unknown]
  - Diabetic complication [Fatal]
